FAERS Safety Report 8017275-2 (Version None)
Quarter: 2012Q1

REPORT INFORMATION
  Report Type: 
  Country: None (occurrence: None)
  Receive Date: 20120102
  Receipt Date: 20111222
  Transmission Date: 20120608
  Serious: Yes (Hospitalization, Other)
  Sender: FDA-Public Use
  Company Number: US-NOVOPROD-341882

PATIENT

DRUGS (1)
  1. NOVOLOG [Suspect]
     Indication: TYPE 2 DIABETES MELLITUS
     Dosage: 20 U, TID
     Route: 058
     Dates: start: 20060101

REACTIONS (3)
  - BLOOD COUNT ABNORMAL [None]
  - HEADACHE [None]
  - DYSPNOEA [None]
